FAERS Safety Report 8488693-3 (Version None)
Quarter: 2012Q2

REPORT INFORMATION
  Report Type: 
  Country: None (occurrence: None)
  Receive Date: 20120626
  Receipt Date: 20120612
  Transmission Date: 20120825
  Serious: Yes (Hospitalization, Other)
  Sender: FDA-Public Use
  Company Number: EU-2012-10029

PATIENT
  Sex: Male
  Weight: 80 kg

DRUGS (17)
  1. GLIMEPIRID (GLIMEPIRIDE) [Concomitant]
  2. RAMIPRIL [Concomitant]
  3. MOXONIDINE (MOXONIDINE) [Concomitant]
  4. HYDROCHLORTHIAZID (HYDROCHLOROTHIAZIDE) [Concomitant]
  5. SAMSCA [Suspect]
     Indication: INAPPROPRIATE ANTIDIURETIC HORMONE SECRETION
     Dosage: SEE IMAGE
     Route: 048
     Dates: start: 20120226, end: 20120226
  6. SAMSCA [Suspect]
     Indication: INAPPROPRIATE ANTIDIURETIC HORMONE SECRETION
     Dosage: SEE IMAGE
     Route: 048
     Dates: start: 20120115, end: 20120120
  7. SAMSCA [Suspect]
     Indication: INAPPROPRIATE ANTIDIURETIC HORMONE SECRETION
     Dosage: SEE IMAGE
     Route: 048
     Dates: start: 20120114, end: 20120114
  8. SAMSCA [Suspect]
     Indication: INAPPROPRIATE ANTIDIURETIC HORMONE SECRETION
     Dosage: SEE IMAGE
     Route: 048
     Dates: start: 20120131, end: 20120201
  9. SAMSCA [Suspect]
     Indication: INAPPROPRIATE ANTIDIURETIC HORMONE SECRETION
     Dosage: SEE IMAGE
     Route: 048
     Dates: start: 20120109, end: 20120113
  10. SAMSCA [Suspect]
     Indication: INAPPROPRIATE ANTIDIURETIC HORMONE SECRETION
     Dosage: SEE IMAGE
     Route: 048
     Dates: start: 20120103, end: 20120104
  11. BISOPROLOL (BISOPROLOL HEMIFUMARATE) [Concomitant]
  12. ALLOPURINOL [Concomitant]
  13. METFFORMIN HYDROCHLORIDE [Concomitant]
  14. BISOPROLOL (BISOPROLOL HEMIFUMARATE) [Concomitant]
  15. TAZOBACTAM [Concomitant]
  16. CLARITHROMYCIN [Concomitant]
  17. AMLODIPIN (AMLODIPIN) [Concomitant]

REACTIONS (8)
  - CONFUSIONAL STATE [None]
  - SUBILEUS [None]
  - RAPID CORRECTION OF HYPONATRAEMIA [None]
  - INFECTION [None]
  - MUCOSAL INFLAMMATION [None]
  - UROGENITAL DISORDER [None]
  - BALANITIS [None]
  - WRONG TECHNIQUE IN DRUG USAGE PROCESS [None]
